FAERS Safety Report 12306278 (Version 9)
Quarter: 2019Q3

REPORT INFORMATION
  Report Type: Report from Study
  Country: TW (occurrence: TW)
  Receive Date: 20160426
  Receipt Date: 20190926
  Transmission Date: 20191004
  Serious: Yes (Hospitalization)
  Sender: FDA-Public Use
  Company Number: PHHY2016TW049992

PATIENT
  Age: 89 Year
  Sex: Female
  Weight: 59.6 kg

DRUGS (203)
  1. VALSARTAN. [Concomitant]
     Active Substance: VALSARTAN
     Dosage: 160 MG, }3 MONTHS BEFORE VISIT 1
     Route: 048
     Dates: end: 20160406
  2. ALPRAZOLAM. [Concomitant]
     Active Substance: ALPRAZOLAM
     Dosage: 0.25 MG, UNK
     Route: 048
     Dates: start: 20160303
  3. ALPRAZOLAM. [Concomitant]
     Active Substance: ALPRAZOLAM
     Dosage: 0.25 MG, UNK
     Route: 048
     Dates: start: 20160323, end: 20160329
  4. ALPRAZOLAM. [Concomitant]
     Active Substance: ALPRAZOLAM
     Dosage: 0.25 MG, UNK
     Route: 048
     Dates: end: 20171017
  5. AMLODIPINE BESYLATE. [Concomitant]
     Active Substance: AMLODIPINE BESYLATE
     Dosage: 5 MG, UNK
     Route: 048
     Dates: start: 20171015, end: 20171015
  6. BISACODYL. [Concomitant]
     Active Substance: BISACODYL
     Dosage: 20 MG, UNK
     Route: 054
     Dates: start: 20171112, end: 20171112
  7. BISACODYL. [Concomitant]
     Active Substance: BISACODYL
     Dosage: 20 MG, UNK
     Route: 054
     Dates: start: 20171126, end: 20171126
  8. FUROSEMIDE. [Concomitant]
     Active Substance: FUROSEMIDE
     Dosage: 20 MG, UNK
     Route: 048
     Dates: start: 20171117, end: 20171123
  9. GLUCOSE [Concomitant]
     Active Substance: DEXTROSE
     Indication: TYPE 2 DIABETES MELLITUS
     Dosage: 1500 ML,  (5 %IN NORMAL SALINE) (1000+ 500)
     Route: 041
     Dates: start: 20171016, end: 20171016
  10. HEPARIN [Concomitant]
     Active Substance: HEPARIN SODIUM
     Dosage: 5 ML, UNK
     Route: 041
     Dates: start: 20171020, end: 20171020
  11. INSULIN DETEMIR [Concomitant]
     Active Substance: INSULIN DETEMIR
     Dosage: 4 U, UNK
     Route: 058
     Dates: start: 20171019, end: 20171020
  12. INSULIN DETEMIR [Concomitant]
     Active Substance: INSULIN DETEMIR
     Dosage: 14 U, UNK
     Route: 058
     Dates: start: 20171023, end: 20171023
  13. ISOPHANE HUMAN INSULIN [Concomitant]
     Active Substance: INSULIN HUMAN
     Dosage: 4 U, UNK
     Route: 058
     Dates: start: 20171031, end: 20171031
  14. MAGNESIUM OXIDE. [Concomitant]
     Active Substance: MAGNESIUM OXIDE
     Indication: PROPHYLAXIS
     Dosage: 250 MG, UNK
     Route: 048
     Dates: start: 20171012, end: 20171016
  15. METFORMIN [Concomitant]
     Active Substance: METFORMIN HYDROCHLORIDE
     Indication: TYPE 2 DIABETES MELLITUS
     Dosage: 500 MG, UNK
     Route: 048
     Dates: start: 20171130, end: 20171206
  16. INSULIN [Concomitant]
     Active Substance: INSULIN NOS
     Dosage: 18 U, (10+8) (100 UI)
     Route: 058
     Dates: start: 20171013, end: 20171013
  17. INSULIN [Concomitant]
     Active Substance: INSULIN NOS
     Dosage: 10 U, (100UL/ML) (6+4)
     Route: 041
     Dates: start: 20171210, end: 20171210
  18. SENNOSIDE [Concomitant]
     Active Substance: SENNOSIDES
     Dosage: 40 MG, UNK
     Route: 048
     Dates: start: 20171113, end: 20171117
  19. TRAZODONE [Concomitant]
     Active Substance: TRAZODONE HYDROCHLORIDE
     Dosage: 50 MG, UNK
     Route: 048
     Dates: start: 20171205, end: 20171211
  20. TRICHLORMETHIAZIDE [Concomitant]
     Active Substance: TRICHLORMETHIAZIDE
     Dosage: 2 MG, UNK
     Route: 048
     Dates: start: 20171012, end: 20171017
  21. AUGMENTIN [Concomitant]
     Active Substance: AMOXICILLIN\CLAVULANATE POTASSIUM
     Indication: COUGH
     Dosage: 1 G, UNK
     Route: 048
     Dates: start: 20160308, end: 20160323
  22. TASIGNA [Suspect]
     Active Substance: NILOTINIB
     Dosage: 600 MG, QD
     Route: 048
     Dates: start: 20160322, end: 20160501
  23. LACIDIPINE [Concomitant]
     Active Substance: LACIDIPINE
     Indication: HYPERTENSION
     Dosage: 4 MG, UNK }3 MONTHS BEFORE VISIT 1
     Route: 048
     Dates: end: 20160407
  24. ALPRAZOLAM. [Concomitant]
     Active Substance: ALPRAZOLAM
     Dosage: 0.5 MG, UNK
     Route: 048
     Dates: end: 20171116
  25. BISACODYL. [Concomitant]
     Active Substance: BISACODYL
     Dosage: 20 MG, UNK
     Route: 054
     Dates: start: 20171116, end: 20171116
  26. CAPTOPRIL. [Concomitant]
     Active Substance: CAPTOPRIL
     Dosage: 25 MG, UNK
     Route: 048
     Dates: start: 20171111, end: 20171111
  27. CAPTOPRIL. [Concomitant]
     Active Substance: CAPTOPRIL
     Dosage: 25 MG, UNK
     Route: 048
     Dates: start: 20171209, end: 20171211
  28. CAPTOPRIL. [Concomitant]
     Active Substance: CAPTOPRIL
     Dosage: 25 MG, UNK
     Route: 048
     Dates: start: 20171211, end: 20171211
  29. DILTIAZEM. [Concomitant]
     Active Substance: DILTIAZEM
     Indication: HYPERTENSION
     Dosage: 30 MG, UNK
     Route: 048
     Dates: start: 20160314, end: 20160406
  30. ESTAZOLAM. [Concomitant]
     Active Substance: ESTAZOLAM
     Dosage: 2 MG, UNK
     Route: 048
     Dates: start: 20171205, end: 20171206
  31. FUROSEMIDE. [Concomitant]
     Active Substance: FUROSEMIDE
     Indication: HYPERTENSION
     Dosage: 20 MG, UNK
     Route: 042
     Dates: start: 20160325, end: 20160325
  32. FUROSEMIDE. [Concomitant]
     Active Substance: FUROSEMIDE
     Dosage: 20 MG, IVD
     Route: 065
     Dates: start: 20170528, end: 20170529
  33. GLUCOSE [Concomitant]
     Active Substance: DEXTROSE
     Dosage: 40 ML, (GLUCOSE 50%)
     Route: 041
     Dates: start: 20171106, end: 20171106
  34. GLUCOSE [Concomitant]
     Active Substance: DEXTROSE
     Dosage: 40 ML, (GLUCOSE 50%)
     Route: 041
     Dates: start: 20171122, end: 20171122
  35. NICARDIPINE [Concomitant]
     Active Substance: NICARDIPINE
     Indication: HYPERTENSION
     Dosage: 10 MG, UNK
     Route: 041
     Dates: start: 20171012, end: 20171012
  36. NICORANDIL [Concomitant]
     Active Substance: NICORANDIL
     Dosage: 5 MG, UNK
     Route: 048
     Dates: start: 20171123, end: 20171129
  37. INSULIN [Concomitant]
     Active Substance: INSULIN NOS
     Dosage: 16 U, UNK
     Route: 058
     Dates: start: 20171021, end: 20171021
  38. INSULIN [Concomitant]
     Active Substance: INSULIN NOS
     Dosage: 17 U, (10 +7)
     Route: 058
     Dates: start: 20171022, end: 20171022
  39. INSULIN [Concomitant]
     Active Substance: INSULIN NOS
     Dosage: 14 U, (6+8)
     Route: 058
     Dates: start: 20171024, end: 20171024
  40. INSULIN [Concomitant]
     Active Substance: INSULIN NOS
     Dosage: 5 U, UNK
     Route: 058
     Dates: start: 20171025, end: 20171025
  41. INSULIN [Concomitant]
     Active Substance: INSULIN NOS
     Dosage: 4 U, (100UL/ML)
     Route: 058
     Dates: start: 20171025, end: 20171026
  42. INSULIN [Concomitant]
     Active Substance: INSULIN NOS
     Dosage: 8 U, (100UL/ML)
     Route: 058
     Dates: start: 20171120, end: 20171122
  43. SODIUM CHLORIDE. [Concomitant]
     Active Substance: SODIUM CHLORIDE
     Indication: PRODUCT USED FOR UNKNOWN INDICATION
     Dosage: 750 ML, (500+200)
     Route: 041
     Dates: start: 20171016, end: 20171016
  44. CEFAZOLIN [Concomitant]
     Active Substance: CEFAZOLIN
     Indication: PROPHYLAXIS
     Dosage: 3 G, IVD
     Route: 065
     Dates: end: 20160218
  45. LABETALOL [Concomitant]
     Active Substance: LABETALOL\LABETALOL HYDROCHLORIDE
     Indication: HYPERTENSION
     Dosage: 0.5 MG, IVD
     Route: 065
     Dates: start: 20170529, end: 20170530
  46. ISOSORBIDE DINITRATE. [Concomitant]
     Active Substance: ISOSORBIDE DINITRATE
     Indication: MYOCARDIAL ISCHAEMIA
     Dosage: 10 MG, UNK }3 MONTHS BEFORE VISIT 1
     Route: 048
     Dates: end: 20160405
  47. VALSARTAN. [Concomitant]
     Active Substance: VALSARTAN
     Dosage: 80 MG, UNK
     Route: 048
     Dates: start: 20171129, end: 20171129
  48. ACETYLCYSTEINE. [Concomitant]
     Active Substance: ACETYLCYSTEINE
     Indication: COUGH
     Dosage: 600 MG, QD
     Route: 048
     Dates: start: 20160318, end: 20160329
  49. AMLODIPINE BESYLATE. [Concomitant]
     Active Substance: AMLODIPINE BESYLATE
     Indication: HYPERTENSION
     Dosage: 5 MG, UNK
     Route: 048
     Dates: start: 20170529, end: 20170530
  50. AMLODIPINE BESYLATE. [Concomitant]
     Active Substance: AMLODIPINE BESYLATE
     Dosage: 5 MG, UNK
     Route: 048
     Dates: start: 20171113, end: 20171117
  51. CAPTOPRIL. [Concomitant]
     Active Substance: CAPTOPRIL
     Indication: ARRHYTHMIA
     Dosage: 25 MG, UNK
     Route: 048
     Dates: start: 20171028, end: 20171028
  52. CAPTOPRIL. [Concomitant]
     Active Substance: CAPTOPRIL
     Dosage: 12.5 MG, UNK
     Route: 048
     Dates: start: 20171113, end: 20171117
  53. DILTIAZEM. [Concomitant]
     Active Substance: DILTIAZEM
     Dosage: 30 MG, UNK
     Route: 048
     Dates: start: 20171012, end: 20171012
  54. ESTAZOLAM. [Concomitant]
     Active Substance: ESTAZOLAM
     Dosage: 2 MG, UNK
     Route: 048
     Dates: start: 20171106, end: 20171112
  55. ESTAZOLAM. [Concomitant]
     Active Substance: ESTAZOLAM
     Dosage: 2 MG, UNK
     Route: 048
     Dates: start: 20171117, end: 20171123
  56. ESTAZOLAM. [Concomitant]
     Active Substance: ESTAZOLAM
     Dosage: 2 MG, UNK
     Route: 048
     Dates: start: 20171129, end: 20171205
  57. EXFORGE HCT [Concomitant]
     Active Substance: AMLODIPINE BESYLATE\HYDROCHLOROTHIAZIDE\VALSARTAN
     Indication: HYPERTENSION
     Dosage: 12 MG, UNK
     Route: 048
     Dates: start: 20171017, end: 20171018
  58. ISOPHANE HUMAN INSULIN [Concomitant]
     Active Substance: INSULIN HUMAN
     Dosage: 12 U, UNK
     Route: 058
     Dates: start: 20171026, end: 20171031
  59. METFORMIN [Concomitant]
     Active Substance: METFORMIN HYDROCHLORIDE
     Dosage: 500 MG, UNK
     Route: 048
     Dates: start: 20171206, end: 20171211
  60. NICARDIPINE [Concomitant]
     Active Substance: NICARDIPINE
     Dosage: 0.1 MG, (10 MG/ 10 ML/ AMP)
     Route: 041
     Dates: start: 20171012, end: 20171012
  61. NICORANDIL [Concomitant]
     Active Substance: NICORANDIL
     Dosage: 5 MG, UNK
     Route: 048
     Dates: start: 20171030, end: 20171106
  62. NICORANDIL [Concomitant]
     Active Substance: NICORANDIL
     Dosage: 5 MG, UNK
     Route: 048
     Dates: start: 20171112, end: 20171117
  63. NICORANDIL [Concomitant]
     Active Substance: NICORANDIL
     Dosage: 5 MG, UNK
     Route: 048
     Dates: start: 20171129, end: 20171205
  64. INSULIN [Concomitant]
     Active Substance: INSULIN NOS
     Dosage: 4 U,  (100 IU/ML)
     Route: 058
     Dates: start: 20171012, end: 20171012
  65. INSULIN [Concomitant]
     Active Substance: INSULIN NOS
     Dosage: 3 U, (100 IU)
     Route: 058
     Dates: start: 20171015, end: 20171015
  66. INSULIN [Concomitant]
     Active Substance: INSULIN NOS
     Dosage: 6 U, (100UL/ML)
     Route: 058
     Dates: start: 20171105, end: 20171111
  67. INSULIN [Concomitant]
     Active Substance: INSULIN NOS
     Dosage: 10 U,  (100UL/ML)
     Route: 041
     Dates: start: 20171106, end: 20171106
  68. SENNOSIDE [Concomitant]
     Active Substance: SENNOSIDES
     Dosage: 40 MG, UNK
     Route: 048
     Dates: start: 20171123, end: 20171129
  69. SENNOSIDE [Concomitant]
     Active Substance: SENNOSIDES
     Dosage: 40 MG, UNK
     Route: 048
     Dates: start: 20171205, end: 20171211
  70. SODIUM CHLORIDE. [Concomitant]
     Active Substance: SODIUM CHLORIDE
     Dosage: 500 ML, UNK
     Route: 041
     Dates: start: 20171029, end: 20171104
  71. SODIUM CHLORIDE. [Concomitant]
     Active Substance: SODIUM CHLORIDE
     Dosage: 500 ML, UNK
     Route: 041
     Dates: start: 20171104, end: 20171110
  72. SODIUM CHLORIDE. [Concomitant]
     Active Substance: SODIUM CHLORIDE
     Dosage: 500 ML, UNK
     Route: 041
     Dates: start: 20171129, end: 20171129
  73. TRAZODONE [Concomitant]
     Active Substance: TRAZODONE HYDROCHLORIDE
     Indication: INSOMNIA
     Dosage: 50 MG, UNK
     Route: 048
     Dates: start: 20171114, end: 20171117
  74. TRIAMCINOLONE [Concomitant]
     Active Substance: TRIAMCINOLONE
     Indication: PROPHYLAXIS
     Dosage: 6 G, UNK
     Route: 065
     Dates: start: 20171031, end: 20171031
  75. CEFAZOLIN [Concomitant]
     Active Substance: CEFAZOLIN
     Dosage: 1 G, IVD
     Route: 065
     Dates: end: 20160218
  76. ULTRACET [Concomitant]
     Active Substance: ACETAMINOPHEN\TRAMADOL HYDROCHLORIDE
     Dosage: 1 MG, UNK
     Route: 048
     Dates: end: 20160310
  77. KENTAMIN [Concomitant]
     Indication: BACK PAIN
     Dosage: 1 DF, }3 MONTHS BEFORE VISIT 1
     Route: 048
     Dates: end: 20160213
  78. TASIGNA [Suspect]
     Active Substance: NILOTINIB
     Indication: CHRONIC MYELOID LEUKAEMIA
     Dosage: 600 MG, QD
     Route: 048
     Dates: start: 20160302, end: 20160308
  79. TASIGNA [Suspect]
     Active Substance: NILOTINIB
     Dosage: 600 MG, QD
     Route: 048
     Dates: start: 20160629, end: 20171211
  80. DOXAZOSIN [Concomitant]
     Active Substance: DOXAZOSIN MESYLATE
     Indication: HYPERTENSION
     Dosage: 4 MG, UNK }3 MONTHS BEFORE VISIT 1
     Route: 048
  81. VALSARTAN. [Concomitant]
     Active Substance: VALSARTAN
     Indication: HYPERTENSION
     Dosage: 160 MG, UNK
     Route: 048
     Dates: start: 20160329, end: 20160405
  82. BISACODYL. [Concomitant]
     Active Substance: BISACODYL
     Indication: PROPHYLAXIS
     Dosage: 20 MG, UNK
     Route: 054
     Dates: start: 20171019, end: 20171019
  83. BISACODYL. [Concomitant]
     Active Substance: BISACODYL
     Dosage: 20 MG, UNK
     Route: 054
     Dates: start: 20171204, end: 20171204
  84. COMBIVENT [Concomitant]
     Active Substance: ALBUTEROL SULFATE\IPRATROPIUM BROMIDE
     Dosage: 2.5 ML, UNK
     Route: 055
     Dates: start: 20171015, end: 20171016
  85. FUROSEMIDE. [Concomitant]
     Active Substance: FUROSEMIDE
     Dosage: 20 MG, UNK
     Route: 048
     Dates: start: 20171108, end: 20171113
  86. INSULIN DETEMIR [Concomitant]
     Active Substance: INSULIN DETEMIR
     Dosage: 10 U, UNK
     Route: 058
     Dates: start: 20171020, end: 20171020
  87. INSULIN DETEMIR [Concomitant]
     Active Substance: INSULIN DETEMIR
     Dosage: 14 U, UNK
     Route: 058
     Dates: start: 20171023, end: 20171024
  88. LIDOCAINE. [Concomitant]
     Active Substance: LIDOCAINE
     Indication: PROPHYLAXIS
     Dosage: 20 ML, UNK
     Route: 065
     Dates: start: 20171020, end: 20171020
  89. LIDOCAINE. [Concomitant]
     Active Substance: LIDOCAINE
     Dosage: 20 ML, }3 MONTHS BEFORE VISIT 1
     Route: 050
     Dates: end: 20160222
  90. NICORANDIL [Concomitant]
     Active Substance: NICORANDIL
     Dosage: 5 MG, UNK
     Route: 048
     Dates: start: 20171117, end: 20171123
  91. NICORANDIL [Concomitant]
     Active Substance: NICORANDIL
     Dosage: 5 MG, UNK
     Route: 048
     Dates: start: 20171211, end: 20171211
  92. INSULIN [Concomitant]
     Active Substance: INSULIN NOS
     Dosage: 6 U,(100UL/ML)
     Route: 058
     Dates: start: 20171123, end: 20171130
  93. INSULIN [Concomitant]
     Active Substance: INSULIN NOS
     Dosage: 10 U, ,(100UL/ML)
     Route: 058
     Dates: start: 20171124, end: 20171124
  94. INSULIN [Concomitant]
     Active Substance: INSULIN NOS
     Dosage: 8 U,(100UL/ML)
     Route: 058
     Dates: start: 20171211, end: 20171211
  95. REPAGLINIDE. [Concomitant]
     Active Substance: REPAGLINIDE
     Indication: TYPE 2 DIABETES MELLITUS
     Dosage: 0.5 MG, UNK
     Route: 048
     Dates: start: 20171201, end: 20171211
  96. SENNOSIDE [Concomitant]
     Active Substance: SENNOSIDES
     Indication: PROPHYLAXIS
     Dosage: 40 MG, UNK
     Route: 048
     Dates: start: 20160418, end: 20171012
  97. SENNOSIDE [Concomitant]
     Active Substance: SENNOSIDES
     Dosage: 20 MG, UNK
     Route: 048
     Dates: start: 20171014, end: 20171014
  98. SENNOSIDE [Concomitant]
     Active Substance: SENNOSIDES
     Dosage: 40 MG, UNK
     Route: 048
     Dates: start: 20171027, end: 20171102
  99. SENNOSIDE [Concomitant]
     Active Substance: SENNOSIDES
     Dosage: 40 MG, UNK
     Route: 048
     Dates: start: 20171117, end: 20171123
  100. SODIUM CHLORIDE. [Concomitant]
     Active Substance: SODIUM CHLORIDE
     Dosage: 500 ML, UNK
     Route: 041
     Dates: start: 20171210, end: 20171211
  101. ACETYLCYSTEINE. [Concomitant]
     Active Substance: ACETYLCYSTEINE
     Indication: COUGH
     Dosage: 200 MG, }3 MONTHS BEFORE VISIT 1
     Route: 048
     Dates: end: 20160309
  102. MOSAPRIDE [Concomitant]
     Active Substance: MOSAPRIDE
     Indication: PROPHYLAXIS
     Dosage: 5 MG, UNK
     Route: 048
     Dates: start: 20160316, end: 20160318
  103. SPIRONOLACTONE. [Concomitant]
     Active Substance: SPIRONOLACTONE
     Indication: HYPERTENSION
     Dosage: 25 MG, UNK
     Route: 048
     Dates: start: 20160329, end: 20160329
  104. ISOSORBIDE DINITRATE. [Concomitant]
     Active Substance: ISOSORBIDE DINITRATE
     Dosage: 5 MG, UNK
     Route: 048
     Dates: start: 20160418, end: 20171012
  105. BENZONATATE. [Concomitant]
     Active Substance: BENZONATATE
     Indication: COUGH
     Dosage: 100 MG, UNK
     Route: 048
     Dates: start: 20160308, end: 20160325
  106. AMLODIPINE BESYLATE. [Concomitant]
     Active Substance: AMLODIPINE BESYLATE
     Dosage: 5 MG, UNK
     Route: 048
     Dates: start: 20171117, end: 20171123
  107. CAPTOPRIL. [Concomitant]
     Active Substance: CAPTOPRIL
     Dosage: 12.5 MG, UNK
     Route: 048
     Dates: start: 20171117, end: 20171123
  108. DILTIAZEM. [Concomitant]
     Active Substance: DILTIAZEM
     Dosage: 30 MG, UNK
     Route: 048
     Dates: start: 20171023, end: 20171023
  109. ESTAZOLAM. [Concomitant]
     Active Substance: ESTAZOLAM
     Dosage: 2 MG, UNK
     Route: 048
     Dates: start: 20171030, end: 20171106
  110. FUROSEMIDE. [Concomitant]
     Active Substance: FUROSEMIDE
     Dosage: 20 MG, UNK
     Route: 041
     Dates: start: 20171015, end: 20171015
  111. GLUCOSE [Concomitant]
     Active Substance: DEXTROSE
     Dosage: 1500 ML, (5 %IN NORMAL SALINE 500 ML)
     Route: 041
     Dates: start: 20171016, end: 20171018
  112. IOHEXOL [Concomitant]
     Active Substance: IOHEXOL
     Indication: PROPHYLAXIS
     Dosage: 525 MG, UNK
     Route: 041
     Dates: start: 20171016, end: 20171016
  113. ISOSORBIDE-5-MONONITRATE [Concomitant]
     Active Substance: ISOSORBIDE MONONITRATE
     Dosage: 20 MG, UNK
     Route: 048
     Dates: start: 20171113, end: 20171117
  114. ISOSORBIDE-5-MONONITRATE [Concomitant]
     Active Substance: ISOSORBIDE MONONITRATE
     Dosage: 20 MG, UNK
     Route: 048
     Dates: start: 20171117, end: 20171123
  115. ISOSORBIDE-5-MONONITRATE [Concomitant]
     Active Substance: ISOSORBIDE MONONITRATE
     Dosage: 20 MG, UNK
     Route: 048
     Dates: start: 20171205, end: 20171211
  116. NICARDIPINE [Concomitant]
     Active Substance: NICARDIPINE
     Dosage: 10 MG, UNK
     Route: 041
     Dates: start: 20171013, end: 20171013
  117. INSULIN [Concomitant]
     Active Substance: INSULIN NOS
     Indication: TYPE 2 DIABETES MELLITUS
     Dosage: 7 U, (100 IU/ ML 10 ML/ VIAL)
     Route: 041
     Dates: start: 20171011, end: 20171112
  118. INSULIN [Concomitant]
     Active Substance: INSULIN NOS
     Dosage: 19 U,  (10+4+5)  (100 IU)
     Route: 041
     Dates: start: 20171016, end: 20171016
  119. INSULIN [Concomitant]
     Active Substance: INSULIN NOS
     Dosage: 3 U, (100 IU)
     Route: 058
     Dates: start: 20171016, end: 20171016
  120. INSULIN [Concomitant]
     Active Substance: INSULIN NOS
     Dosage: 12 U, (100UL/ML)
     Route: 058
     Dates: start: 20171025, end: 20171026
  121. INSULIN [Concomitant]
     Active Substance: INSULIN NOS
     Dosage: 8 U, (100UL/ML)
     Route: 058
     Dates: start: 20171122, end: 20171123
  122. SODIUM CHLORIDE. [Concomitant]
     Active Substance: SODIUM CHLORIDE
     Dosage: 500 ML, UNK
     Route: 041
     Dates: start: 20171127, end: 20171127
  123. TRAZODONE [Concomitant]
     Active Substance: TRAZODONE HYDROCHLORIDE
     Dosage: 50 MG, UNK
     Route: 048
     Dates: start: 20171129, end: 20171205
  124. CETIRIZINE [Concomitant]
     Active Substance: CETIRIZINE HYDROCHLORIDE
     Indication: BRONCHITIS
     Dosage: 10 MG, }3 MONTHS BEFORE VISIT 1
     Route: 048
     Dates: end: 20160119
  125. AUGMENTIN [Concomitant]
     Active Substance: AMOXICILLIN\CLAVULANATE POTASSIUM
     Indication: PRODUCTIVE COUGH
  126. PREDNISONE. [Concomitant]
     Active Substance: PREDNISONE
     Indication: BRONCHITIS
     Dosage: 5 MG, }3 MONTHS BEFORE VISIT 1
     Route: 048
     Dates: end: 20160119
  127. TASIGNA [Suspect]
     Active Substance: NILOTINIB
     Dosage: 300 MG, QD
     Route: 048
     Dates: start: 20160309, end: 20160321
  128. TASIGNA [Suspect]
     Active Substance: NILOTINIB
     Dosage: 450 MG, QD
     Route: 048
     Dates: start: 20160502, end: 20160628
  129. ISOSORBIDE DINITRATE. [Concomitant]
     Active Substance: ISOSORBIDE DINITRATE
     Dosage: 20 MG, UNK
     Route: 048
     Dates: start: 20171109, end: 20171212
  130. PROPRANOLOL [Concomitant]
     Active Substance: PROPRANOLOL HYDROCHLORIDE
     Indication: ARRHYTHMIA
     Dosage: 5 MG, UNK }3 MONTHS BEFORE VISIT 1
     Route: 048
     Dates: end: 20160404
  131. WARFARIN [Concomitant]
     Active Substance: WARFARIN
     Indication: PROPHYLAXIS
     Dosage: 2.5 MG, UNK }3 MONTHS BEFORE VISIT 1
     Route: 048
     Dates: end: 20171017
  132. ALPRAZOLAM. [Concomitant]
     Active Substance: ALPRAZOLAM
     Indication: INSOMNIA
     Dosage: 0.25 MG, UNK }3 MONTHS BEFORE VISIT 1
     Route: 048
     Dates: end: 20160222
  133. ALPRAZOLAM. [Concomitant]
     Active Substance: ALPRAZOLAM
     Dosage: 0.5 MG, UNK
     Route: 048
     Dates: start: 20170721
  134. ACETYLCYSTEINE. [Concomitant]
     Active Substance: ACETYLCYSTEINE
     Indication: PRODUCTIVE COUGH
     Dosage: 600 MG, UNK
     Route: 048
     Dates: start: 20171016, end: 20171211
  135. CAPTOPRIL. [Concomitant]
     Active Substance: CAPTOPRIL
     Dosage: 25 MG, UNK
     Route: 048
     Dates: start: 20171111, end: 20171113
  136. CAPTOPRIL. [Concomitant]
     Active Substance: CAPTOPRIL
     Dosage: 12.5 MG, UNK
     Route: 048
     Dates: start: 20171123, end: 20171129
  137. CAPTOPRIL. [Concomitant]
     Active Substance: CAPTOPRIL
     Dosage: 12.5 MG, UNK
     Route: 048
     Dates: start: 20171129, end: 20171203
  138. COMBIVENT [Concomitant]
     Active Substance: ALBUTEROL SULFATE\IPRATROPIUM BROMIDE
     Indication: PRODUCTIVE COUGH
     Dosage: 2.5 ML, (AMP)
     Route: 055
     Dates: start: 20171012, end: 20171015
  139. GLUCOSE [Concomitant]
     Active Substance: DEXTROSE
     Dosage: 40 ML, (GLUOCSE 50% 20 ML/AMP)
     Route: 041
     Dates: start: 20171016, end: 20171016
  140. INSULIN DETEMIR [Concomitant]
     Active Substance: INSULIN DETEMIR
     Dosage: 14 U, UNK
     Route: 058
     Dates: start: 20171024, end: 20171024
  141. INSULIN DETEMIR [Concomitant]
     Active Substance: INSULIN DETEMIR
     Dosage: 14 U, UNK
     Route: 058
     Dates: start: 20171024, end: 20171025
  142. ISOPHANE HUMAN INSULIN [Concomitant]
     Active Substance: INSULIN HUMAN
     Indication: TYPE 2 DIABETES MELLITUS
     Dosage: 8 U, UNK
     Route: 058
     Dates: start: 20171025, end: 20171026
  143. ISOSORBIDE-5-MONONITRATE [Concomitant]
     Active Substance: ISOSORBIDE MONONITRATE
     Dosage: 20 MG, UNK
     Route: 048
     Dates: start: 20171123, end: 20171129
  144. NICARDIPINE [Concomitant]
     Active Substance: NICARDIPINE
     Dosage: 1 MG,  (10 MG/ 1ML/ AMP)
     Route: 041
     Dates: start: 20171015, end: 20171015
  145. NICORANDIL [Concomitant]
     Active Substance: NICORANDIL
     Dosage: 5 MG, UNK
     Route: 048
     Dates: start: 20171024, end: 20171030
  146. INSULIN [Concomitant]
     Active Substance: INSULIN NOS
     Dosage: 10 U, UNK
     Route: 058
     Dates: start: 20171020, end: 20171020
  147. INSULIN [Concomitant]
     Active Substance: INSULIN NOS
     Dosage: 4 U, (100UL/ML)
     Route: 058
     Dates: start: 20171111, end: 20171120
  148. SENNOSIDE [Concomitant]
     Active Substance: SENNOSIDES
     Dosage: 40 MG, UNK
     Route: 048
     Dates: start: 20171102, end: 20171108
  149. SENNOSIDE [Concomitant]
     Active Substance: SENNOSIDES
     Dosage: 40 MG, UNK
     Route: 048
     Dates: start: 20171108, end: 20171113
  150. SENNOSIDE [Concomitant]
     Active Substance: SENNOSIDES
     Dosage: 40 MG, UNK
     Route: 048
     Dates: start: 20171129, end: 20171205
  151. SENNOSIDE [Concomitant]
     Active Substance: SENNOSIDES
     Dosage: 40 MG, UNK
     Route: 048
     Dates: start: 20171211, end: 20171211
  152. SODIUM CHLORIDE. [Concomitant]
     Active Substance: SODIUM CHLORIDE
     Dosage: 500 ML, UNK
     Route: 041
     Dates: start: 20171128, end: 20171128
  153. TRAZODONE [Concomitant]
     Active Substance: TRAZODONE HYDROCHLORIDE
     Dosage: 50 MG, UNK
     Route: 048
     Dates: start: 20171211, end: 20171211
  154. ULTRACET [Concomitant]
     Active Substance: ACETAMINOPHEN\TRAMADOL HYDROCHLORIDE
     Indication: BACK PAIN
     Dosage: 0.5 MG, UNK
     Route: 048
     Dates: end: 20160213
  155. MOSAPRIDE [Concomitant]
     Active Substance: MOSAPRIDE
     Dosage: 5 MG, UNK
     Route: 048
     Dates: start: 20160323, end: 20160324
  156. SPIRONOLACTONE. [Concomitant]
     Active Substance: SPIRONOLACTONE
     Dosage: 25 MG, UNK
     Route: 048
     Dates: start: 20160418, end: 20171211
  157. BENZONATATE. [Concomitant]
     Active Substance: BENZONATATE
     Indication: PRODUCTIVE COUGH
     Dosage: 100 MG, UNK
     Route: 048
     Dates: start: 20160326, end: 20160326
  158. BISACODYL. [Concomitant]
     Active Substance: BISACODYL
     Dosage: 20 MG, UNK
     Route: 054
     Dates: start: 20171028, end: 20171028
  159. BISACODYL. [Concomitant]
     Active Substance: BISACODYL
     Dosage: 20 MG, UNK
     Route: 054
     Dates: start: 20171106, end: 20171106
  160. BISACODYL. [Concomitant]
     Active Substance: BISACODYL
     Dosage: 20 MG, UNK
     Route: 054
     Dates: start: 20171130, end: 20171130
  161. CAPTOPRIL. [Concomitant]
     Active Substance: CAPTOPRIL
     Dosage: 25 MG, UNK
     Route: 048
     Dates: start: 20171106, end: 20171106
  162. CAPTOPRIL. [Concomitant]
     Active Substance: CAPTOPRIL
     Dosage: 25 MG, UNK
     Route: 048
     Dates: start: 20171203, end: 20171209
  163. ESTAZOLAM. [Concomitant]
     Active Substance: ESTAZOLAM
     Indication: INSOMNIA
     Dosage: 2 MG, UNK
     Route: 048
     Dates: start: 20160418, end: 20171206
  164. EXFORGE HCT [Concomitant]
     Active Substance: AMLODIPINE BESYLATE\HYDROCHLOROTHIAZIDE\VALSARTAN
     Dosage: 12 MG, UNK
     Route: 048
     Dates: start: 20171209, end: 20171209
  165. GLUCOSE [Concomitant]
     Active Substance: DEXTROSE
     Dosage: 40 ML, (GLUCOSE 50%)
     Route: 041
     Dates: start: 20171210, end: 20171210
  166. INSULIN DETEMIR [Concomitant]
     Active Substance: INSULIN DETEMIR
     Indication: TYPE 2 DIABETES MELLITUS
     Dosage: 5 U, UNK
     Route: 058
     Dates: start: 20171019, end: 20171019
  167. INSULIN DETEMIR [Concomitant]
     Active Substance: INSULIN DETEMIR
     Dosage: 5 U, UNK
     Route: 058
     Dates: start: 20171020, end: 20171021
  168. ISOSORBIDE-5-MONONITRATE [Concomitant]
     Active Substance: ISOSORBIDE MONONITRATE
     Indication: ARRHYTHMIA
     Dosage: 20 MG, UNK
     Route: 048
     Dates: start: 20171109, end: 20171113
  169. ISOSORBIDE-5-MONONITRATE [Concomitant]
     Active Substance: ISOSORBIDE MONONITRATE
     Dosage: 20 MG, UNK
     Route: 048
     Dates: start: 20171211, end: 20171211
  170. NICORANDIL [Concomitant]
     Active Substance: NICORANDIL
     Indication: HYPERTENSION
     Dosage: 5 MG, UNK
     Route: 048
     Dates: start: 20171018, end: 20171024
  171. NICORANDIL [Concomitant]
     Active Substance: NICORANDIL
     Dosage: 5 MG, UNK
     Route: 048
     Dates: start: 20171205, end: 20171211
  172. INSULIN [Concomitant]
     Active Substance: INSULIN NOS
     Dosage: 5 U, (100 IU)
     Route: 041
     Dates: start: 20171016, end: 20171019
  173. INSULIN [Concomitant]
     Active Substance: INSULIN NOS
     Dosage: 8 U, UNK
     Route: 058
     Dates: start: 20171025, end: 20171026
  174. SODIUM CHLORIDE. [Concomitant]
     Active Substance: SODIUM CHLORIDE
     Dosage: 500 ML, UNK
     Route: 041
     Dates: start: 20171022, end: 20171029
  175. SODIUM CHLORIDE. [Concomitant]
     Active Substance: SODIUM CHLORIDE
     Dosage: 500 ML, UNK
     Route: 041
     Dates: start: 20171117, end: 20171117
  176. SODIUM CHLORIDE. [Concomitant]
     Active Substance: SODIUM CHLORIDE
     Dosage: 500 ML, UNK
     Route: 041
     Dates: start: 20171123, end: 20171125
  177. TRAZODONE [Concomitant]
     Active Substance: TRAZODONE HYDROCHLORIDE
     Dosage: 50 MG, UNK
     Route: 048
     Dates: start: 20171123, end: 20171129
  178. ACETYLCYSTEINE. [Concomitant]
     Active Substance: ACETYLCYSTEINE
     Indication: PRODUCTIVE COUGH
     Dosage: 200 MG, UNK
     Route: 048
     Dates: start: 20160323, end: 20160323
  179. SPIRONOLACTONE. [Concomitant]
     Active Substance: SPIRONOLACTONE
     Dosage: 25 MG, UNK
     Route: 048
     Dates: start: 20160412, end: 20160414
  180. VALSARTAN. [Concomitant]
     Active Substance: VALSARTAN
     Dosage: 80 MG, UNK
     Route: 048
     Dates: start: 20160406, end: 20160407
  181. AMLODIPINE BESYLATE. [Concomitant]
     Active Substance: AMLODIPINE BESYLATE
     Dosage: 5 MG, UNK
     Route: 048
     Dates: start: 20171123, end: 20171129
  182. BISACODYL. [Concomitant]
     Active Substance: BISACODYL
     Dosage: 20 MG, UNK
     Route: 054
     Dates: start: 20171209, end: 20171209
  183. ESTAZOLAM. [Concomitant]
     Active Substance: ESTAZOLAM
     Dosage: 2 MG, UNK
     Route: 048
     Dates: start: 20171112, end: 20171117
  184. ESTAZOLAM. [Concomitant]
     Active Substance: ESTAZOLAM
     Dosage: 2 MG, UNK
     Route: 048
     Dates: start: 20171123, end: 20171129
  185. FUROSEMIDE. [Concomitant]
     Active Substance: FUROSEMIDE
     Dosage: 20 MG, IVD
     Route: 065
     Dates: start: 20160404, end: 20160409
  186. FUROSEMIDE. [Concomitant]
     Active Substance: FUROSEMIDE
     Dosage: 20 MG, IVD
     Route: 065
     Dates: start: 20160412, end: 20160412
  187. GLUCOSE [Concomitant]
     Active Substance: DEXTROSE
     Dosage: 40 ML, (GLUCOSE 50%)
     Route: 041
     Dates: start: 20171111, end: 20171111
  188. HEPARIN [Concomitant]
     Active Substance: HEPARIN SODIUM
     Indication: PROPHYLAXIS
     Dosage: 2500 IU, }3 MONTHS BEFORE VISIT 1
     Route: 050
     Dates: end: 20160222
  189. INSULIN DETEMIR [Concomitant]
     Active Substance: INSULIN DETEMIR
     Dosage: 7 U, UNK
     Route: 058
     Dates: start: 20171021, end: 20171021
  190. INSULIN DETEMIR [Concomitant]
     Active Substance: INSULIN DETEMIR
     Dosage: 10 U, UNK
     Route: 058
     Dates: start: 20171021, end: 20171022
  191. ISOSORBIDE-5-MONONITRATE [Concomitant]
     Active Substance: ISOSORBIDE MONONITRATE
     Dosage: 20 MG, UNK
     Route: 048
     Dates: start: 20171129, end: 20171205
  192. LOSARTAN. [Concomitant]
     Active Substance: LOSARTAN
     Indication: HYPERTENSION
     Dosage: 50 MG, UNK
     Route: 048
     Dates: start: 20160921, end: 20171017
  193. NICORANDIL [Concomitant]
     Active Substance: NICORANDIL
     Dosage: 5 MG, UNK
     Route: 048
     Dates: start: 20171106, end: 20171112
  194. INSULIN [Concomitant]
     Active Substance: INSULIN NOS
     Dosage: 9 U, (3+6) (100 IU)
     Route: 058
     Dates: start: 20171013, end: 20171013
  195. INSULIN [Concomitant]
     Active Substance: INSULIN NOS
     Dosage: 13 U, (5 +8)
     Route: 058
     Dates: start: 20171021, end: 20171021
  196. INSULIN [Concomitant]
     Active Substance: INSULIN NOS
     Dosage: 3 U, UNK
     Route: 058
     Dates: start: 20171023, end: 20171023
  197. SENNOSIDE [Concomitant]
     Active Substance: SENNOSIDES
     Dosage: 40 MG, UNK
     Route: 048
     Dates: start: 20171021, end: 20171027
  198. SODIUM CHLORIDE. [Concomitant]
     Active Substance: SODIUM CHLORIDE
     Dosage: 500 ML, UNK
     Route: 041
     Dates: start: 20171016, end: 20171022
  199. SODIUM CHLORIDE. [Concomitant]
     Active Substance: SODIUM CHLORIDE
     Dosage: 500 ML, UNK
     Route: 041
     Dates: start: 20171110, end: 20171113
  200. SODIUM CHLORIDE. [Concomitant]
     Active Substance: SODIUM CHLORIDE
     Dosage: 500 ML, UNK
     Route: 041
     Dates: start: 20171113, end: 20171117
  201. TRAZODONE [Concomitant]
     Active Substance: TRAZODONE HYDROCHLORIDE
     Dosage: 50 MG, UNK
     Route: 048
     Dates: start: 20171117, end: 20171123
  202. TRICHLORMETHIAZIDE [Concomitant]
     Active Substance: TRICHLORMETHIAZIDE
     Indication: HYPERTENSION
     Dosage: 2 MG, }3 MONTHS BEFORE VISIT 1
     Route: 048
     Dates: end: 20160120
  203. PREDNISONE. [Concomitant]
     Active Substance: PREDNISONE
     Dosage: 5 MG, }3 MONTHS BEFORE VISIT 1
     Route: 048
     Dates: end: 20160404

REACTIONS (15)
  - Dyspnoea [Unknown]
  - Cough [Not Recovered/Not Resolved]
  - Chest pain [Recovered/Resolved]
  - Arterial fibrosis [Not Recovered/Not Resolved]
  - Pneumonia aspiration [Recovered/Resolved]
  - Orthopnoea [Not Recovered/Not Resolved]
  - Dyspnoea [Recovered/Resolved]
  - Pleural effusion [Not Recovered/Not Resolved]
  - Chest discomfort [Not Recovered/Not Resolved]
  - Cardiac failure [Recovered/Resolved]
  - Emphysema [Recovering/Resolving]
  - Anaemia [Recovered/Resolved]
  - Bronchitis [Recovered/Resolved]
  - Pulmonary oedema [Recovered/Resolved]
  - Inappropriate schedule of product administration [Unknown]

NARRATIVE: CASE EVENT DATE: 20160302
